FAERS Safety Report 18927537 (Version 2)
Quarter: 2021Q2

REPORT INFORMATION
  Report Type: Spontaneous
  Country: JP (occurrence: JP)
  Receive Date: 20210223
  Receipt Date: 20210525
  Transmission Date: 20210717
  Serious: Yes (Hospitalization, Other)
  Sender: FDA-Public Use
  Company Number: JP-JNJFOC-20210236035

PATIENT

DRUGS (2)
  1. KYPROLIS [Concomitant]
     Active Substance: CARFILZOMIB
     Dosage: DOSE UNKNOWN
     Route: 042
     Dates: start: 20210114, end: 2021
  2. DARZALEX [Suspect]
     Active Substance: DARATUMUMAB
     Indication: PRODUCT USED FOR UNKNOWN INDICATION
     Route: 041
     Dates: start: 20210114, end: 2021

REACTIONS (2)
  - Disease progression [Unknown]
  - Cytomegalovirus infection [Not Recovered/Not Resolved]

NARRATIVE: CASE EVENT DATE: 2021
